FAERS Safety Report 4465612-8 (Version None)
Quarter: 2004Q3

REPORT INFORMATION
  Report Type: 
  Country: None (occurrence: None)
  Receive Date: 20040929
  Receipt Date: 20040812
  Transmission Date: 20050211
  Serious: Yes (Death)
  Sender: FDA-Public Use
  Company Number: M-04-322

PATIENT
  Age: 89 Year
  Sex: Male

DRUGS (1)
  1. AMIODARONE HCL 20 MG, USL [Suspect]
     Indication: ATRIAL FIBRILLATION
     Dosage: MG   PO
     Route: 048

REACTIONS (1)
  - PULMONARY TOXICITY [None]
